FAERS Safety Report 6834107-6 (Version None)
Quarter: 2010Q3

REPORT INFORMATION
  Report Type: 
  Country: None (occurrence: None)
  Receive Date: 20100712
  Receipt Date: 20070416
  Transmission Date: 20110219
  Serious: No
  Sender: FDA-Public Use
  Company Number: US-PFIZER INC-2007031531

PATIENT
  Sex: Female
  Weight: 56 kg

DRUGS (7)
  1. CHANTIX [Suspect]
     Indication: SMOKING CESSATION THERAPY
     Dates: start: 20070412
  2. NAVANE [Concomitant]
  3. CLONAZEPAM [Concomitant]
  4. PROZAC [Concomitant]
  5. MAXZIDE [Concomitant]
  6. SIMVASTATIN [Concomitant]
  7. ADDERALL 10 [Concomitant]

REACTIONS (2)
  - INSOMNIA [None]
  - SLEEP DISORDER [None]
